FAERS Safety Report 18926182 (Version 2)
Quarter: 2021Q1

REPORT INFORMATION
  Report Type: Spontaneous
  Country: US (occurrence: US)
  Receive Date: 20210223
  Receipt Date: 20210226
  Transmission Date: 20210420
  Serious: No
  Sender: FDA-Public Use
  Company Number: NVSC2021US034176

PATIENT
  Sex: Female

DRUGS (1)
  1. XIIDRA [Suspect]
     Active Substance: LIFITEGRAST
     Indication: PRODUCT USED FOR UNKNOWN INDICATION
     Dosage: 5 %, BID (2/DAY)
     Route: 047

REACTIONS (7)
  - Vision blurred [Unknown]
  - Device difficult to use [Unknown]
  - Oral mucosal erythema [Unknown]
  - Mouth swelling [Unknown]
  - Wrong technique in product usage process [Unknown]
  - Stomatitis [Unknown]
  - Drug hypersensitivity [Unknown]
